FAERS Safety Report 11393979 (Version 1)
Quarter: 2015Q3

REPORT INFORMATION
  Report Type: Report from Study
  Country: US (occurrence: US)
  Receive Date: 20150819
  Receipt Date: 20150819
  Transmission Date: 20151125
  Serious: No
  Sender: FDA-Public Use
  Company Number: PHEH2015US007482

PATIENT
  Age: 61 Year
  Sex: Male

DRUGS (1)
  1. GILENYA [Suspect]
     Active Substance: FINGOLIMOD HYDROCHLORIDE
     Indication: MULTIPLE SCLEROSIS
     Dosage: 0.5 MG, QD
     Route: 048
     Dates: start: 20150409

REACTIONS (6)
  - Stress [Unknown]
  - Hypoaesthesia [Unknown]
  - Heart rate irregular [Unknown]
  - Multiple sclerosis [Recovering/Resolving]
  - Memory impairment [Unknown]
  - Dysgeusia [Unknown]

NARRATIVE: CASE EVENT DATE: 20150411
